FAERS Safety Report 7065697-9 (Version None)
Quarter: 2010Q4

REPORT INFORMATION
  Report Type: 
  Country: None (occurrence: None)
  Receive Date: 20101027
  Receipt Date: 20100927
  Transmission Date: 20110411
  Serious: No
  Sender: FDA-Public Use
  Company Number: US-BAYER-201020796BCC

PATIENT
  Sex: Female
  Weight: 77 kg

DRUGS (17)
  1. ALEVE (CAPLET) [Suspect]
     Indication: BACK PAIN
     Route: 048
     Dates: end: 20100901
  2. FUROSEMIDE [Concomitant]
  3. SYMBICORT [Concomitant]
  4. XOPENEX [Concomitant]
  5. EVISTA [Concomitant]
  6. LISINOPRIL [Concomitant]
  7. COREG [Concomitant]
  8. DIGOXIN [Concomitant]
  9. PREDNISONE [Concomitant]
  10. LEVOXYL [Concomitant]
  11. IPRATROPIUM BROMIDE [Concomitant]
  12. ASPIRIN [Concomitant]
  13. REVATIO [Concomitant]
  14. CENTRUM SILVER [Concomitant]
  15. VITAMIN D [Concomitant]
  16. MAGNESIUM [Concomitant]
  17. LORAZEPAM [Concomitant]

REACTIONS (8)
  - ABDOMINAL DISTENSION [None]
  - ABDOMINAL PAIN UPPER [None]
  - CONTUSION [None]
  - MUSCULOSKELETAL STIFFNESS [None]
  - NERVOUSNESS [None]
  - PRURITUS [None]
  - VISUAL IMPAIRMENT [None]
  - WEIGHT INCREASED [None]
